FAERS Safety Report 24017781 (Version 1)
Quarter: 2024Q2

REPORT INFORMATION
  Report Type: Spontaneous
  Country: JP (occurrence: JP)
  Receive Date: 20240627
  Receipt Date: 20240627
  Transmission Date: 20240717
  Serious: Yes (Hospitalization, Other)
  Sender: FDA-Public Use
  Company Number: JP-SANDOZ-SDZ2024JP060031

PATIENT

DRUGS (3)
  1. VALSARTAN [Suspect]
     Active Substance: VALSARTAN
     Indication: Product used for unknown indication
     Dosage: UNK
     Route: 064
  2. ZOLPIDEM TARTRATE [Suspect]
     Active Substance: ZOLPIDEM TARTRATE
     Indication: Product used for unknown indication
     Dosage: UNK
     Route: 064
  3. ETIZOLAM [Concomitant]
     Active Substance: ETIZOLAM
     Indication: Product used for unknown indication
     Dosage: UNK
     Route: 064

REACTIONS (3)
  - Foetal growth restriction [Unknown]
  - Renal impairment [Unknown]
  - Foetal exposure during pregnancy [Unknown]
